FAERS Safety Report 6861400-3 (Version None)
Quarter: 2010Q3

REPORT INFORMATION
  Report Type: 
  Country: None (occurrence: None)
  Receive Date: 20100720
  Receipt Date: 20100712
  Transmission Date: 20110219
  Serious: Yes (Life-Threatening, Hospitalization, Other)
  Sender: FDA-Public Use
  Company Number: JP-GENENTECH-303701

PATIENT
  Age: 75 Year
  Sex: Male

DRUGS (2)
  1. GRTPA [Suspect]
     Indication: CEREBRAL INFARCTION
     Dosage: 24.9 ML, UNK
     Route: 042
     Dates: start: 20100616, end: 20100616
  2. RADICUT [Suspect]
     Indication: CEREBRAL INFARCTION
     Dosage: 30 MG, UNK
     Route: 041
     Dates: start: 20100616, end: 20100616

REACTIONS (1)
  - ANAPHYLACTIC SHOCK [None]
